FAERS Safety Report 24919989 (Version 1)
Quarter: 2025Q1

REPORT INFORMATION
  Report Type: Report from Study
  Country: US (occurrence: US)
  Receive Date: 20250204
  Receipt Date: 20250204
  Transmission Date: 20250408
  Serious: No
  Sender: EXELIXIS
  Company Number: US-EXELIXIS-CABO-24074831

PATIENT
  Age: 66 Year
  Sex: Female

DRUGS (22)
  1. CABOMETYX [Suspect]
     Active Substance: CABOZANTINIB S-MALATE
     Indication: Renal cell carcinoma
     Dosage: 60 MG, QD
     Dates: start: 2019
  2. CABOMETYX [Suspect]
     Active Substance: CABOZANTINIB S-MALATE
  3. CABOMETYX [Suspect]
     Active Substance: CABOZANTINIB S-MALATE
     Dosage: 20 MG, QD
     Dates: end: 202401
  4. CABOMETYX [Suspect]
     Active Substance: CABOZANTINIB S-MALATE
     Dosage: 20 MG, QD
  5. CABOMETYX [Suspect]
     Active Substance: CABOZANTINIB S-MALATE
     Dosage: 20 MG, QD
     Dates: start: 20240415, end: 202410
  6. CABOMETYX [Suspect]
     Active Substance: CABOZANTINIB S-MALATE
     Dosage: 20 MG, QD
     Dates: end: 202412
  7. AMLODIPINE [Concomitant]
     Active Substance: AMLODIPINE BESYLATE
  8. METOPROLOL SUCCINATE [Concomitant]
     Active Substance: METOPROLOL SUCCINATE
  9. LOSARTAN [Concomitant]
     Active Substance: LOSARTAN
  10. SENNA [Concomitant]
     Active Substance: SENNOSIDES
  11. METFORMIN [Concomitant]
     Active Substance: METFORMIN HYDROCHLORIDE
  12. LEVOTHYROXINE [Concomitant]
     Active Substance: LEVOTHYROXINE
  13. AMOXICILLIN [Concomitant]
     Active Substance: AMOXICILLIN
  14. METRONIDAZOLE [Concomitant]
     Active Substance: METRONIDAZOLE
  15. PROTONIX [Concomitant]
     Active Substance: PANTOPRAZOLE SODIUM
  16. ONDANSETRON [Concomitant]
     Active Substance: ONDANSETRON
  17. NORCO [Concomitant]
     Active Substance: ACETAMINOPHEN\HYDROCODONE BITARTRATE
  18. ACETAMINOPHEN [Concomitant]
     Active Substance: ACETAMINOPHEN
  19. PREDNISONE [Concomitant]
     Active Substance: PREDNISONE
  20. GABAPENTIN [Concomitant]
     Active Substance: GABAPENTIN
  21. CLOTRIMAZOLE [Concomitant]
     Active Substance: CLOTRIMAZOLE
  22. SUCRALFATE [Concomitant]
     Active Substance: SUCRALFATE

REACTIONS (19)
  - Blood pressure increased [Recovered/Resolved]
  - Blood potassium decreased [Not Recovered/Not Resolved]
  - Limb discomfort [Recovering/Resolving]
  - Thyroid disorder [Not Recovered/Not Resolved]
  - Gastrointestinal motility disorder [Not Recovered/Not Resolved]
  - Blood cholesterol increased [Unknown]
  - Dizziness [Recovered/Resolved]
  - Decreased appetite [Recovered/Resolved]
  - Fatigue [Not Recovered/Not Resolved]
  - Illness [Unknown]
  - Balance disorder [Recovering/Resolving]
  - Muscular weakness [Recovering/Resolving]
  - Myalgia [Recovering/Resolving]
  - Formication [Recovered/Resolved]
  - Accident [Unknown]
  - Jaw disorder [Not Recovered/Not Resolved]
  - Flatulence [Unknown]
  - Weight decreased [Recovered/Resolved]
  - Inappropriate schedule of product administration [Unknown]

NARRATIVE: CASE EVENT DATE: 20240523
